FAERS Safety Report 8214114-1 (Version None)
Quarter: 2012Q1

REPORT INFORMATION
  Report Type: 
  Country: None (occurrence: None)
  Receive Date: 20120314
  Receipt Date: 20120314
  Transmission Date: 20120608
  Serious: Yes (Hospitalization)
  Sender: FDA-Public Use
  Company Number: None

PATIENT
  Age: 84 Year
  Sex: Female
  Weight: 65.9 kg

DRUGS (24)
  1. TYLENOL [Concomitant]
  2. MYLANTA [Concomitant]
  3. CALETRATE [Concomitant]
  4. LOTEMAX [Concomitant]
  5. MELOXICAM [Concomitant]
  6. ATENOLOL [Concomitant]
  7. LISINOPRIL [Concomitant]
  8. CARBIDOPA/ENTACAPONE/LEVODOPA [Concomitant]
  9. OMEPRAZOLE [Concomitant]
  10. MAG HYDROXIDE [Concomitant]
  11. DONEPEZIL HCL [Concomitant]
  12. HYDROCHLOROTHIAZIDE [Concomitant]
  13. SELENIUM [Concomitant]
  14. FUROXETINE [Concomitant]
  15. BACTRIM [Suspect]
     Indication: SKIN LESION
     Dosage: PO  RECENT
     Route: 048
  16. BACTRIM [Suspect]
     Indication: POST PROCEDURAL COMPLICATION
     Dosage: PO  RECENT
     Route: 048
  17. SEROQUEL [Concomitant]
  18. OCULAR LUBRICANT [Concomitant]
  19. DARIFENACIN [Concomitant]
  20. SEROQUEL [Concomitant]
  21. BISMUTH (KAOPECTATE) [Concomitant]
  22. SYNTHROID [Concomitant]
  23. VICODIN [Concomitant]
  24. FLUOCINONIDE [Concomitant]

REACTIONS (2)
  - ENCEPHALOPATHY [None]
  - RENAL FAILURE ACUTE [None]
